FAERS Safety Report 17015131 (Version 3)
Quarter: 2020Q1

REPORT INFORMATION
  Report Type: Report from Study
  Country: TW (occurrence: TW)
  Receive Date: 20191111
  Receipt Date: 20200217
  Transmission Date: 20200409
  Serious: Yes (Hospitalization, Other)
  Sender: FDA-Public Use
  Company Number: PHHY2018TW018434

PATIENT
  Age: 81 Year
  Sex: Male
  Weight: 74.5 kg

DRUGS (9)
  1. KODAZOL [Concomitant]
     Indication: MYELODYSPLASTIC SYNDROME
     Dosage: 200 MG, UNK
     Route: 048
     Dates: start: 20171108
  2. DIPHENHYDRAMINE. [Concomitant]
     Active Substance: DIPHENHYDRAMINE
     Indication: PROPHYLAXIS
     Dosage: 30 MG, UNK
     Route: 065
     Dates: start: 20180126, end: 20180127
  3. METHOXY POLYETHYLENE GLYCOL-EPOETIN BETA. [Concomitant]
     Active Substance: METHOXY POLYETHYLENE GLYCOL-EPOETIN BETA
     Indication: MYELODYSPLASTIC SYNDROME
     Dosage: 50 UG, UNK
     Route: 058
     Dates: start: 20170927, end: 20170927
  4. DESFERAL [Concomitant]
     Active Substance: DEFEROXAMINE MESYLATE
     Indication: MYELODYSPLASTIC SYNDROME
     Dosage: 1500 MG, UNK
     Route: 065
     Dates: start: 20180126, end: 20180128
  5. EXJADE [Suspect]
     Active Substance: DEFERASIROX
     Indication: MYELODYSPLASTIC SYNDROME
     Dosage: 625 MG, QD
     Route: 048
     Dates: start: 20171025, end: 20180205
  6. METHOXY POLYETHYLENE GLYCOL-EPOETIN BETA. [Concomitant]
     Active Substance: METHOXY POLYETHYLENE GLYCOL-EPOETIN BETA
     Dosage: 50 UG, UNK
     Route: 058
     Dates: start: 20171011, end: 20171011
  7. PRIMPERAN [Concomitant]
     Active Substance: METOCLOPRAMIDE HYDROCHLORIDE
     Indication: VOMITING
     Dosage: 10 MG, UNK
     Route: 042
     Dates: start: 20180129
  8. PRIMPERAN [Concomitant]
     Active Substance: METOCLOPRAMIDE HYDROCHLORIDE
     Dosage: 10 MG, UNK
     Route: 042
     Dates: start: 20180205, end: 20180208
  9. METHOXY POLYETHYLENE GLYCOL-EPOETIN BETA. [Concomitant]
     Active Substance: METHOXY POLYETHYLENE GLYCOL-EPOETIN BETA
     Dosage: 50 UG, UNK
     Route: 058
     Dates: start: 20171025, end: 20171025

REACTIONS (19)
  - Pneumocystis jirovecii infection [Recovered/Resolved]
  - Protein urine present [Unknown]
  - Blood urea increased [Unknown]
  - Myelodysplastic syndrome [Recovering/Resolving]
  - Blood creatinine increased [Not Recovered/Not Resolved]
  - Constipation [Not Recovered/Not Resolved]
  - Metabolic acidosis [Unknown]
  - Respiratory failure [Recovered/Resolved]
  - Occult blood positive [Unknown]
  - Pyrexia [Recovering/Resolving]
  - Lung infiltration [Recovering/Resolving]
  - Interstitial lung disease [Not Recovered/Not Resolved]
  - Chronic kidney disease [Recovered/Resolved]
  - Hyperkalaemia [Not Recovered/Not Resolved]
  - Upper gastrointestinal haemorrhage [Recovered/Resolved]
  - Stress ulcer [Not Recovered/Not Resolved]
  - Insomnia [Recovered/Resolved]
  - C-reactive protein increased [Unknown]
  - Sepsis [Recovered/Resolved]

NARRATIVE: CASE EVENT DATE: 20171213
